FAERS Safety Report 6756807-9 (Version None)
Quarter: 2010Q2

REPORT INFORMATION
  Report Type: 
  Country: None (occurrence: None)
  Receive Date: 20100604
  Receipt Date: 20100525
  Transmission Date: 20101027
  Serious: Yes (Hospitalization, Other)
  Sender: FDA-Public Use
  Company Number: US-ELI_LILLY_AND_COMPANY-US201005006927

PATIENT
  Sex: Female
  Weight: 133.33 kg

DRUGS (11)
  1. BYETTA [Suspect]
     Indication: TYPE 2 DIABETES MELLITUS
     Dosage: 5 UG, 2/D
     Route: 058
     Dates: start: 20100201, end: 20100501
  2. BYETTA [Suspect]
     Dosage: 10 UG, 2/D
     Route: 058
     Dates: start: 20100501
  3. METFORMIN [Concomitant]
     Indication: TYPE 2 DIABETES MELLITUS
     Dosage: 500 MG, EACH EVENING
     Dates: start: 20100522
  4. ATENOLOL [Concomitant]
     Indication: BLOOD PRESSURE INCREASED
     Dosage: 4 MG, UNK
     Dates: end: 20100501
  5. ATENOLOL [Concomitant]
     Dosage: 4 MG, UNK
     Dates: start: 20100501
  6. MICARDIS [Concomitant]
     Dosage: 40 MG, UNK
     Dates: end: 20100501
  7. MICARDIS [Concomitant]
     Dosage: 40 MG, UNK
     Dates: start: 20100501
  8. FUROSEMIDE [Concomitant]
     Dosage: 40 MG, UNK
     Dates: end: 20100501
  9. FUROSEMIDE [Concomitant]
     Dosage: 40 MG, UNK
     Dates: start: 20100501
  10. AMLODIPINE [Concomitant]
     Dosage: 10 MG, UNK
     Dates: end: 20100501
  11. AMLODIPINE [Concomitant]
     Dosage: 10 MG, UNK
     Dates: start: 20100501

REACTIONS (10)
  - ABDOMINAL DISTENSION [None]
  - ABDOMINAL PAIN [None]
  - BLOOD BILIRUBIN ABNORMAL [None]
  - BLOOD GLUCOSE INCREASED [None]
  - CHOLELITHIASIS [None]
  - FATIGUE [None]
  - INFECTION [None]
  - JAUNDICE [None]
  - NAUSEA [None]
  - PROCEDURAL COMPLICATION [None]
